FAERS Safety Report 5934218-3 (Version None)
Quarter: 2008Q4

REPORT INFORMATION
  Report Type: 
  Country: None (occurrence: None)
  Receive Date: 20081028
  Receipt Date: 20081028
  Transmission Date: 20090506
  Serious: Yes (Hospitalization)
  Sender: FDA-Public Use
  Company Number: None

PATIENT
  Age: 55 Year
  Sex: Male
  Weight: 28.84 kg

DRUGS (5)
  1. RITUXAN [Suspect]
     Indication: MANTLE CELL LYMPHOMA
     Dosage: 780 MG 30 HR INFUSION IV
     Route: 042
     Dates: start: 20081009, end: 20081010
  2. CYCLOPHOSPHAMIDE [Suspect]
     Indication: MANTLE CELL LYMPHOMA
     Dosage: IV
     Route: 042
     Dates: start: 20081008, end: 20081008
  3. DOXORUBICIN HCL [Suspect]
     Indication: MANTLE CELL LYMPHOMA
     Dosage: IV
     Route: 042
     Dates: start: 20081008, end: 20081008
  4. VINCRISTINE [Suspect]
     Indication: MANTLE CELL LYMPHOMA
     Dosage: IV
     Route: 042
     Dates: start: 20081008, end: 20081008
  5. PREDNISOLONE [Suspect]
     Indication: MANTLE CELL LYMPHOMA
     Dosage: IV
     Route: 042
     Dates: start: 20081008, end: 20081008

REACTIONS (6)
  - CARDIAC ARREST [None]
  - DYSPNOEA [None]
  - HYPOXIA [None]
  - INFUSION RELATED REACTION [None]
  - PYREXIA [None]
  - RESPIRATORY DISTRESS [None]
